FAERS Safety Report 4407623-4 (Version None)
Quarter: 2004Q3

REPORT INFORMATION
  Report Type: 
  Country: None (occurrence: None)
  Receive Date: 20040721
  Receipt Date: 20040702
  Transmission Date: 20050211
  Serious: No
  Sender: FDA-Public Use
  Company Number: 2004-BP-04696AU(1)

PATIENT
  Age: 46 Year
  Sex: Female

DRUGS (1)
  1. MOBIC [Suspect]
     Indication: TENDONITIS
     Dosage: PO
     Route: 048

REACTIONS (3)
  - BACTERIAL INFECTION [None]
  - FOLLICULITIS [None]
  - RASH GENERALISED [None]
